FAERS Safety Report 6829868-6 (Version None)
Quarter: 2010Q3

REPORT INFORMATION
  Report Type: 
  Country: None (occurrence: None)
  Receive Date: 20100710
  Receipt Date: 20100629
  Transmission Date: 20110219
  Serious: No
  Sender: FDA-Public Use
  Company Number: US-JNJFOC-20100700406

PATIENT
  Sex: Male
  Weight: 68.04 kg

DRUGS (4)
  1. DURAGESIC-100 [Suspect]
     Indication: BACK PAIN
     Dosage: NDC NUMBER: 50458-094
     Route: 062
  2. PERCOCET [Concomitant]
     Indication: PAIN
     Route: 048
  3. VITAMIN TAB [Concomitant]
     Route: 048
  4. ALPRAZOLAM [Concomitant]
     Indication: SLEEP DISORDER
     Route: 048

REACTIONS (8)
  - ANXIETY [None]
  - DRUG DOSE OMISSION [None]
  - DYSGEUSIA [None]
  - FEELING ABNORMAL [None]
  - INCORRECT DRUG ADMINISTRATION RATE [None]
  - PRODUCT QUALITY ISSUE [None]
  - THERAPEUTIC RESPONSE DECREASED [None]
  - WITHDRAWAL SYNDROME [None]
